FAERS Safety Report 23962631 (Version 1)
Quarter: 2024Q2

REPORT INFORMATION
  Report Type: Spontaneous
  Country: US (occurrence: None)
  Receive Date: 20240611
  Receipt Date: 20240611
  Transmission Date: 20240716
  Serious: Yes (Other)
  Sender: FDA-Public Use
  Company Number: None

PATIENT
  Sex: Male

DRUGS (4)
  1. GLASSIA [Suspect]
     Active Substance: .ALPHA.1-PROTEINASE INHIBITOR HUMAN
     Dosage: FREQ: GLASSIA 1017 MG/VIAL, 28 VIALS. INFUSE SEVEN 1017 MG VIALS (7119 MG) INTRAVENOUSLY ONCE A WEE
     Route: 042
     Dates: start: 20221102
  2. HEPARIN LOCK FLUSH [Concomitant]
     Active Substance: HEPARIN SODIUM
  3. MONOJECT PREFILL ADVANCED [Concomitant]
  4. SODIUM CHLORIDE [Concomitant]
     Active Substance: SODIUM CHLORIDE

REACTIONS (1)
  - Prostate cancer [None]
